FAERS Safety Report 14860517 (Version 1)
Quarter: 2018Q2

REPORT INFORMATION
  Report Type: Spontaneous
  Country: FI (occurrence: FI)
  Receive Date: 20180508
  Receipt Date: 20180508
  Transmission Date: 20180711
  Serious: Yes (Hospitalization)
  Sender: FDA-Public Use
  Company Number: FI-NOVOPROD-597983

PATIENT
  Age: 12 Year
  Sex: Male

DRUGS (1)
  1. NOVORAPID [Suspect]
     Active Substance: INSULIN ASPART
     Indication: TYPE 1 DIABETES MELLITUS
     Dosage: 50-60 IU
     Route: 058

REACTIONS (3)
  - Product leakage [Unknown]
  - Product container seal issue [Unknown]
  - Diabetic ketoacidosis [Recovered/Resolved]
